FAERS Safety Report 4982610-6 (Version None)
Quarter: 2006Q2

REPORT INFORMATION
  Report Type: 
  Country: None (occurrence: None)
  Receive Date: 20060419
  Receipt Date: 20060406
  Transmission Date: 20061013
  Serious: Yes (Other)
  Sender: FDA-Public Use
  Company Number: 200612301BWH

PATIENT
  Age: 73 Year
  Sex: Male
  Weight: 73.9363 kg

DRUGS (11)
  1. SORAFENIB [Suspect]
     Indication: METASTATIC RENAL CELL CARCINOMA
     Dosage: 200 MG, QD, ORAL
     Route: 048
     Dates: start: 20060227, end: 20060313
  2. PLETAL [Concomitant]
  3. CARDURA [Concomitant]
  4. PREDNISONE TAB [Concomitant]
  5. MAVIK [Concomitant]
  6. OSCAL 500-D [Concomitant]
  7. ZANTAC [Concomitant]
  8. SENOKOT [Concomitant]
  9. METAMUCIL [Concomitant]
  10. ZOMETA [Concomitant]
  11. COMPAZINE [Concomitant]

REACTIONS (11)
  - ABDOMINAL PAIN [None]
  - ARRHYTHMIA [None]
  - ARTHRALGIA [None]
  - ATELECTASIS [None]
  - CHEST PAIN [None]
  - CONSTIPATION [None]
  - FATIGUE [None]
  - LUNG HYPERINFLATION [None]
  - NAUSEA [None]
  - PALPITATIONS [None]
  - SUPRAVENTRICULAR TACHYCARDIA [None]
